FAERS Safety Report 12760082 (Version 2)
Quarter: 2016Q4

REPORT INFORMATION
  Report Type: Spontaneous
  Country: US (occurrence: US)
  Receive Date: 20160919
  Receipt Date: 20161013
  Transmission Date: 20170207
  Serious: Yes (Hospitalization)
  Sender: FDA-Public Use
  Company Number: US-JNJFOC-20160913366

PATIENT
  Sex: Male

DRUGS (1)
  1. STELARA [Suspect]
     Active Substance: USTEKINUMAB
     Indication: PRODUCT USED FOR UNKNOWN INDICATION
     Route: 058
     Dates: start: 2016

REACTIONS (6)
  - Dyspnoea [Recovered/Resolved]
  - Delusion [Unknown]
  - Chest pain [Recovered/Resolved]
  - Abnormal behaviour [Unknown]
  - Overdose [Unknown]
  - Chromaturia [Unknown]

NARRATIVE: CASE EVENT DATE: 2016
